FAERS Safety Report 25180436 (Version 1)
Quarter: 2025Q2

REPORT INFORMATION
  Report Type: Report from Study
  Country: PT (occurrence: PT)
  Receive Date: 20250409
  Receipt Date: 20250409
  Transmission Date: 20250716
  Serious: Yes (Hospitalization)
  Sender: PFIZER
  Company Number: PT-ROCHE-10000243339

PATIENT

DRUGS (2)
  1. TOPOTECAN HYDROCHLORIDE [Suspect]
     Active Substance: TOPOTECAN HYDROCHLORIDE
     Indication: Neoplasm malignant
     Route: 042
     Dates: start: 20241213
  2. CYCLOPHOSPHAMIDE [Suspect]
     Active Substance: CYCLOPHOSPHAMIDE
     Indication: Neoplasm malignant
     Dosage: ON 10-MAR-2025, THE PATIENT RECEIVED MOST RECENT DOSE OF CYCLOPHOSPHAMIDE PRIOR TO AE.
     Route: 042
     Dates: start: 20241213

REACTIONS (2)
  - Pancytopenia [Recovered/Resolved]
  - Pyrexia [Recovered/Resolved]

NARRATIVE: CASE EVENT DATE: 20250315
